FAERS Safety Report 6987564-9 (Version None)
Quarter: 2010Q3

REPORT INFORMATION
  Report Type: 
  Country: None (occurrence: None)
  Receive Date: 20100916
  Receipt Date: 20100812
  Transmission Date: 20110219
  Serious: No
  Sender: FDA-Public Use
  Company Number: US-PFIZER INC-2010101966

PATIENT
  Age: 58 Year
  Sex: Female

DRUGS (2)
  1. ZYVOX [Suspect]
     Indication: STAPHYLOCOCCAL INFECTION
     Dosage: 600 MG, 2X/DAY
     Route: 048
  2. DIFLUCAN [Suspect]
     Dosage: 150 MG X 5 DAYS

REACTIONS (1)
  - FUNGAL SKIN INFECTION [None]
